FAERS Safety Report 9545919 (Version 1)
Quarter: 2013Q3

REPORT INFORMATION
  Report Type: Spontaneous
  Country: GB (occurrence: GB)
  Receive Date: 20130923
  Receipt Date: 20130923
  Transmission Date: 20140515
  Serious: Yes (Disabling)
  Sender: FDA-Public Use
  Company Number: GB-WATSON-2013-16588

PATIENT
  Age: 76 Year
  Sex: Male
  Weight: 72 kg

DRUGS (4)
  1. PRAMIPEXOLE DIHYDROCHLORIDE (UNKNOWN) [Suspect]
     Indication: PARKINSON^S DISEASE
     Dosage: 2 DF TID; 1MG SALT (0.7MG BASE) TWO TABLETS THREE TIMES DAILY
     Route: 048
     Dates: start: 20130702, end: 20130712
  2. PRAMIPEXOLE [Suspect]
     Indication: PARKINSON^S DISEASE
     Dosage: 2 DF, TID; 1MG SALT (0.7MG BASE)
     Route: 048
     Dates: start: 20130622, end: 20130702
  3. MADOPAR [Concomitant]
     Indication: PRODUCT USED FOR UNKNOWN INDICATION
     Dosage: UNK
     Route: 065
  4. RAMIPRIL [Concomitant]
     Indication: PRODUCT USED FOR UNKNOWN INDICATION
     Dosage: UNK
     Route: 065

REACTIONS (8)
  - Gait disturbance [Unknown]
  - Coordination abnormal [Unknown]
  - Dizziness [Unknown]
  - Listless [Unknown]
  - Fatigue [Unknown]
  - Feeling abnormal [Unknown]
  - Product substitution issue [Unknown]
  - Drug ineffective [Unknown]
